FAERS Safety Report 24164475 (Version 1)
Quarter: 2024Q3

REPORT INFORMATION
  Report Type: Spontaneous
  Country: CN (occurrence: CN)
  Receive Date: 20240801
  Receipt Date: 20240801
  Transmission Date: 20241016
  Serious: Yes (Other)
  Sender: PFIZER
  Company Number: CN-PFIZER INC-PV202400085182

PATIENT
  Age: 49 Year
  Sex: Male

DRUGS (1)
  1. BENEFIX [Suspect]
     Active Substance: COAGULATION FACTOR IX RECOMBINANT HUMAN\ISOPROPYL ALCOHOL
     Dosage: UNK

REACTIONS (4)
  - Post procedural haemorrhage [Unknown]
  - Gastrointestinal haemorrhage [Unknown]
  - Factor IX deficiency [Unknown]
  - Weight decreased [Unknown]

NARRATIVE: CASE EVENT DATE: 20240601
